FAERS Safety Report 4760358-0 (Version None)
Quarter: 2005Q3

REPORT INFORMATION
  Report Type: 
  Country: None (occurrence: None)
  Receive Date: 20050826
  Receipt Date: 20050504
  Transmission Date: 20060218
  Serious: No
  Sender: FDA-Public Use
  Company Number: 2005US002508

PATIENT
  Age: 51 Year
  Sex: Female

DRUGS (5)
  1. ALOXI [Suspect]
     Indication: PROPHYLAXIS OF NAUSEA AND VOMITING
     Dosage: 0.25 MG,SINGLE,IV BOLUS
     Route: 040
     Dates: start: 20050418, end: 20050418
  2. DECADRON [Concomitant]
  3. SODIUM CHLORIDE [Concomitant]
  4. ADRIAMYCIN PFS [Concomitant]
  5. CYTOXAN [Concomitant]

REACTIONS (4)
  - CHEILITIS [None]
  - HYPERSENSITIVITY [None]
  - ORAL PAIN [None]
  - SKIN NODULE [None]
